FAERS Safety Report 9206983 (Version 1)
Quarter: 2013Q2

REPORT INFORMATION
  Report Type: Spontaneous
  Country: US (occurrence: US)
  Receive Date: 20130403
  Receipt Date: 20130403
  Transmission Date: 20140414
  Serious: No
  Sender: FDA-Public Use
  Company Number: US-BAYER-2013-038795

PATIENT
  Age: 73 Year
  Sex: Male
  Weight: 104.31 kg

DRUGS (1)
  1. ALEVE CAPLET [Suspect]
     Indication: ARTHRITIS
     Dosage: 2 DF, QD
     Route: 048

REACTIONS (2)
  - Skin exfoliation [None]
  - Skin exfoliation [None]
